FAERS Safety Report 6906662-9 (Version None)
Quarter: 2010Q3

REPORT INFORMATION
  Report Type: 
  Country: None (occurrence: None)
  Receive Date: 20100804
  Receipt Date: 20100727
  Transmission Date: 20110219
  Serious: Yes (Death, Other)
  Sender: FDA-Public Use
  Company Number: US-PFIZER INC-2005151247

PATIENT
  Sex: Female
  Weight: 150 kg

DRUGS (4)
  1. NEURONTIN [Suspect]
  2. PAROXETINE [Suspect]
     Dosage: UNK
     Route: 048
  3. OXYCODONE [Suspect]
  4. QUETIAPINE [Suspect]

REACTIONS (3)
  - COMPLETED SUICIDE [None]
  - DRUG INEFFECTIVE [None]
  - MULTIPLE DRUG OVERDOSE INTENTIONAL [None]
